FAERS Safety Report 17834582 (Version 1)
Quarter: 2020Q2

REPORT INFORMATION
  Report Type: Spontaneous
  Country: US (occurrence: US)
  Receive Date: 20200528
  Receipt Date: 20200528
  Transmission Date: 20200714
  Serious: Yes (Death)
  Sender: FDA-Public Use
  Company Number: None

PATIENT
  Age: 78 Year
  Sex: Male
  Weight: 71.4 kg

DRUGS (13)
  1. FENTANYL. [Concomitant]
     Active Substance: FENTANYL
     Dates: start: 20200527, end: 20200528
  2. ENOXAPARIN [Concomitant]
     Active Substance: ENOXAPARIN
     Dates: start: 20200527, end: 20200528
  3. MORPHINE [Concomitant]
     Active Substance: MORPHINE
     Dates: start: 20200528, end: 20200528
  4. ALLOPURINAL [Concomitant]
     Active Substance: ALLOPURINOL
     Dates: start: 20200523, end: 20200526
  5. DEXMEDETOMIDINE. [Concomitant]
     Active Substance: DEXMEDETOMIDINE
     Dates: start: 20200527, end: 20200528
  6. LORAZEPAM. [Concomitant]
     Active Substance: LORAZEPAM
     Dates: start: 20200524, end: 20200528
  7. INSULIN [Concomitant]
     Active Substance: INSULIN NOS
     Dates: start: 20200523, end: 20200527
  8. DILTIAZEM. [Concomitant]
     Active Substance: DILTIAZEM
     Dates: start: 20200527, end: 20200528
  9. IPRATROPIUM [Concomitant]
     Active Substance: IPRATROPIUM
     Dates: start: 20200523, end: 20200527
  10. CEFEPIME [Concomitant]
     Active Substance: CEFEPIME HYDROCHLORIDE
     Dates: start: 20200526, end: 20200527
  11. METOPROLOL. [Concomitant]
     Active Substance: METOPROLOL
     Dates: start: 20200526, end: 20200527
  12. FUROSEMIDE. [Concomitant]
     Active Substance: FUROSEMIDE
     Dates: start: 20200526, end: 20200527
  13. REMDESIVIR. [Suspect]
     Active Substance: REMDESIVIR
     Indication: COVID-19
     Route: 042
     Dates: start: 20200526, end: 20200527

REACTIONS (1)
  - Hypoxia [None]

NARRATIVE: CASE EVENT DATE: 20200528
